FAERS Safety Report 9607737 (Version 3)
Quarter: 2013Q4

REPORT INFORMATION
  Report Type: Not Available
  Country: JP (occurrence: JP)
  Receive Date: 20131009
  Receipt Date: 20131029
  Transmission Date: 20140711
  Serious: Yes (Life-Threatening)
  Sender: FDA-Public Use
  Company Number: JP-ASTELLAS-2013JP009511

PATIENT
  Age: 46 Year
  Sex: Male
  Weight: 75 kg

DRUGS (6)
  1. PROGRAF [Suspect]
     Indication: IMMUNOSUPPRESSANT DRUG THERAPY
     Dosage: UNK
     Route: 041
     Dates: start: 20130904, end: 20130904
  2. MAGNESIUM SULFATE [Suspect]
     Dosage: 1 MEQ, UID/QD
     Route: 041
     Dates: start: 20130904, end: 20130904
  3. MAGNESIUM SULFATE [Suspect]
     Dosage: UNK MEQ, UID/QD
     Route: 041
     Dates: start: 2013
  4. NEUTROGIN [Suspect]
     Indication: NEUTROPENIA
     Dosage: 350 UG, UID/QD
     Route: 041
     Dates: start: 20130904
  5. FINIBAX [Concomitant]
     Indication: FEBRILE NEUTROPENIA
     Dosage: 0.5 G, TID
     Route: 041
     Dates: start: 20130831, end: 20130913
  6. SEISHOKU [Concomitant]
     Dosage: 900 ML, BID
     Route: 041
     Dates: start: 20130903, end: 20130904

REACTIONS (1)
  - Anaphylactic reaction [Recovering/Resolving]
